FAERS Safety Report 13872942 (Version 2)
Quarter: 2017Q4

REPORT INFORMATION
  Report Type: Spontaneous
  Country: GB (occurrence: GB)
  Receive Date: 20170816
  Receipt Date: 20171106
  Transmission Date: 20180320
  Serious: Yes (Other)
  Sender: FDA-Public Use
  Company Number: GB-ACCORD-056954

PATIENT
  Age: 73 Year
  Sex: Female
  Weight: 88 kg

DRUGS (10)
  1. EPLERENONE. [Suspect]
     Active Substance: EPLERENONE
     Indication: PRODUCT USED FOR UNKNOWN INDICATION
     Dates: start: 201707
  2. ASPIRIN. [Concomitant]
     Active Substance: ASPIRIN
     Dates: start: 20170621
  3. BISOPROLOL [Concomitant]
     Active Substance: BISOPROLOL
     Dosage: MORNING
     Dates: start: 20170621
  4. NAPROXEN. [Concomitant]
     Active Substance: NAPROXEN
     Dosage: AFTER FOOD
     Dates: start: 20160929
  5. CITALOPRAM [Concomitant]
     Active Substance: CITALOPRAM HYDROBROMIDE
     Dates: start: 20160606
  6. ATORVASTATIN [Concomitant]
     Active Substance: ATORVASTATIN
     Dosage: AT NIGHT
     Dates: start: 20170621
  7. RAMIPRIL. [Concomitant]
     Active Substance: RAMIPRIL
     Dates: start: 20170621
  8. TICAGRELOR. [Concomitant]
     Active Substance: TICAGRELOR
     Dosage: UNTIL JUNE 2018
     Dates: start: 20170621
  9. MEBEVERINE [Concomitant]
     Active Substance: MEBEVERINE
     Dosage: THREE TIMES DAILY.
     Dates: start: 20150420
  10. OMEPRAZOLE. [Concomitant]
     Active Substance: OMEPRAZOLE
     Dates: start: 20160429

REACTIONS (2)
  - Liver function test abnormal [Recovering/Resolving]
  - Blood alkaline phosphatase increased [Recovering/Resolving]

NARRATIVE: CASE EVENT DATE: 201707
